FAERS Safety Report 7743610-6 (Version None)
Quarter: 2011Q3

REPORT INFORMATION
  Report Type: 
  Country: None (occurrence: None)
  Receive Date: 20110912
  Receipt Date: 20110830
  Transmission Date: 20111222
  Serious: Yes (Disabling, Other)
  Sender: FDA-Public Use
  Company Number: US-JNJFOC-20110700849

PATIENT
  Sex: Female
  Weight: 81.65 kg

DRUGS (2)
  1. EXTRA STRENGTH TYLENOL [Suspect]
     Indication: ARTHRALGIA
     Route: 048
     Dates: start: 20110401, end: 20110601
  2. EXTRA STRENGTH TYLENOL [Suspect]
     Route: 048

REACTIONS (7)
  - EAR PAIN [None]
  - ABDOMINAL DISCOMFORT [None]
  - NAUSEA [None]
  - GASTROINTESTINAL INFECTION [None]
  - ORAL MUCOSAL ERUPTION [None]
  - VOMITING [None]
  - DIARRHOEA [None]
